FAERS Safety Report 24613035 (Version 1)
Quarter: 2024Q4

REPORT INFORMATION
  Report Type: Spontaneous
  Country: US (occurrence: None)
  Receive Date: 20241113
  Receipt Date: 20241113
  Transmission Date: 20250114
  Serious: Yes (Hospitalization)
  Sender: Public
  Company Number: None

PATIENT
  Age: 44 Year
  Sex: Male
  Weight: 95.1 kg

DRUGS (8)
  1. CYCLOPHOSPHAMIDE [Suspect]
     Active Substance: CYCLOPHOSPHAMIDE
     Dates: end: 20241012
  2. CYTARABINE [Suspect]
     Active Substance: CYTARABINE
     Dates: end: 20241031
  3. SPRYCEL [Suspect]
     Active Substance: DASATINIB
     Dates: end: 20241111
  4. DEXAMETHASONE [Suspect]
     Active Substance: DEXAMETHASONE
     Dates: end: 20241011
  5. DOXORUBICIN HYDROCHLORIDE [Suspect]
     Active Substance: DOXORUBICIN HYDROCHLORIDE
     Dates: end: 20241012
  6. MESNA [Suspect]
     Active Substance: MESNA
     Dates: end: 20241011
  7. METHOTREXATE [Suspect]
     Active Substance: METHOTREXATE
     Dates: end: 20241028
  8. VINCRISTINE SULFATE [Suspect]
     Active Substance: VINCRISTINE SULFATE
     Dates: end: 20241019

REACTIONS (8)
  - Diarrhoea [None]
  - Vomiting [None]
  - Febrile neutropenia [None]
  - Gastroenteritis Escherichia coli [None]
  - Sepsis [None]
  - Hypoxia [None]
  - Hypervolaemia [None]
  - Tachypnoea [None]

NARRATIVE: CASE EVENT DATE: 20241104
